FAERS Safety Report 22044525 (Version 11)
Quarter: 2023Q4

REPORT INFORMATION
  Report Type: Report from Study
  Country: US (occurrence: US)
  Receive Date: 20230228
  Receipt Date: 20231221
  Transmission Date: 20240110
  Serious: No
  Sender: FDA-Public Use
  Company Number: US-002147023-NVSC2023US044580

PATIENT
  Age: 54 Year
  Sex: Female

DRUGS (4)
  1. KESIMPTA [Suspect]
     Active Substance: OFATUMUMAB
     Indication: Relapsing multiple sclerosis
     Dosage: 20 MG, QMO
     Route: 058
     Dates: start: 20230208
  2. KESIMPTA [Suspect]
     Active Substance: OFATUMUMAB
     Dosage: UNK (SECOND LOADING DOSE)
     Route: 065
  3. KESIMPTA [Suspect]
     Active Substance: OFATUMUMAB
     Dosage: UNK
     Route: 065
     Dates: start: 20230405
  4. KESIMPTA [Suspect]
     Active Substance: OFATUMUMAB
     Dosage: UNK (EVERY 6 WEEKS)
     Route: 065

REACTIONS (11)
  - Pain [Unknown]
  - Upper respiratory tract congestion [Unknown]
  - Cough [Unknown]
  - Hypoaesthesia [Recovered/Resolved]
  - Paraesthesia [Recovered/Resolved]
  - Emotional distress [Unknown]
  - Stress [Unknown]
  - Temperature intolerance [Unknown]
  - Pain in extremity [Unknown]
  - Migraine [Recovered/Resolved]
  - Stress fracture [Unknown]

NARRATIVE: CASE EVENT DATE: 20230223
